FAERS Safety Report 5644773-9 (Version None)
Quarter: 2008Q1

REPORT INFORMATION
  Report Type: 
  Country: None (occurrence: None)
  Receive Date: 20080229
  Receipt Date: 20080215
  Transmission Date: 20080703
  Serious: Yes (Hospitalization, Other)
  Sender: FDA-Public Use
  Company Number: GB-RANBAXY-2008RR-13153

PATIENT

DRUGS (4)
  1. ATENOLOL [Suspect]
     Dosage: 50 MG, QD
     Route: 048
  2. AZATHIOPRINE [Suspect]
     Dosage: 150 MG, QD
     Route: 048
     Dates: start: 20071217, end: 20080106
  3. MAXIDEX [Suspect]
     Dosage: 1 %, BID
     Route: 047
     Dates: start: 20071001
  4. RAPAMUDE [Suspect]
     Dosage: 3.5 MG, QD
     Route: 048
     Dates: start: 20071001

REACTIONS (4)
  - DIARRHOEA [None]
  - RENAL FAILURE ACUTE [None]
  - RHABDOMYOLYSIS [None]
  - VOMITING [None]
